FAERS Safety Report 8241432-3 (Version None)
Quarter: 2012Q1

REPORT INFORMATION
  Report Type: 
  Country: None (occurrence: None)
  Receive Date: 20120328
  Receipt Date: 20120320
  Transmission Date: 20120608
  Serious: Yes (Disabling)
  Sender: FDA-Public Use
  Company Number: US-ABBOTT-12P-163-0917220-00

PATIENT
  Sex: Female
  Weight: 90.8 kg

DRUGS (10)
  1. METFORMIN HCL [Concomitant]
     Indication: DIABETES MELLITUS
  2. CALCIUM CARBONATE [Concomitant]
     Indication: PRODUCT USED FOR UNKNOWN INDICATION
     Dosage: DAILY
  3. LIPITOR [Suspect]
     Indication: BLOOD TRIGLYCERIDES INCREASED
     Dosage: 20 MG DAILY
     Dates: end: 20111201
  4. METHOCARBAMOL [Concomitant]
     Indication: MUSCLE SPASMS
  5. ACAI MULTIVITAMIN [Concomitant]
     Indication: PRODUCT USED FOR UNKNOWN INDICATION
  6. GLYBURIDE [Concomitant]
     Indication: DIABETES MELLITUS
     Dosage: HALF A TABLET DAILY
  7. FISH OIL [Concomitant]
     Indication: PRODUCT USED FOR UNKNOWN INDICATION
  8. VITAMIN E [Concomitant]
     Indication: PRODUCT USED FOR UNKNOWN INDICATION
  9. ALPRAZOLAM [Concomitant]
     Indication: ANXIETY
     Dosage: 0.5 MG DAILY
  10. SYNTHROID [Suspect]
     Indication: THYROID DISORDER
     Dosage: 0.150 MG DAILY
     Dates: start: 19660101

REACTIONS (4)
  - BACK PAIN [None]
  - LIMB INJURY [None]
  - HYPERTENSION [None]
  - PAIN IN EXTREMITY [None]
